FAERS Safety Report 19144142 (Version 4)
Quarter: 2021Q4

REPORT INFORMATION
  Report Type: Spontaneous
  Country: DE (occurrence: DE)
  Receive Date: 20210416
  Receipt Date: 20211018
  Transmission Date: 20220303
  Serious: Yes (Other)
  Sender: FDA-Public Use
  Company Number: None

PATIENT
  Sex: Male

DRUGS (5)
  1. DOCETAXEL [Suspect]
     Active Substance: DOCETAXEL
     Indication: Prostate cancer
     Dosage: UNK
     Route: 065
  2. ZOMETA [Suspect]
     Active Substance: ZOLEDRONIC ACID
     Indication: Metastases to bone
     Dosage: UNK, QMO (EVERY 4 WEEKS)
     Route: 065
  3. ZOMETA [Suspect]
     Active Substance: ZOLEDRONIC ACID
     Indication: Prostate cancer
     Route: 065
  4. TRENANTONE [Suspect]
     Active Substance: LEUPROLIDE ACETATE
     Indication: Prostate cancer
     Dosage: UNK UNK, QMO (EVERY 4 WEEKS)
     Route: 065
  5. FLUOROURACIL\LEUCOVORIN CALCIUM\OXALIPLATIN [Suspect]
     Active Substance: FLUOROURACIL\LEUCOVORIN CALCIUM\OXALIPLATIN
     Indication: Colon cancer stage III
     Dosage: UNK
     Route: 065
     Dates: end: 2020

REACTIONS (5)
  - Metastases to lymph nodes [Unknown]
  - Colon cancer stage III [Unknown]
  - Second primary malignancy [Unknown]
  - Paraesthesia [Not Recovered/Not Resolved]
  - Hypoaesthesia [Not Recovered/Not Resolved]
